FAERS Safety Report 9443087 (Version 1)
Quarter: 2013Q3

REPORT INFORMATION
  Report Type: Spontaneous
  Country: FR (occurrence: FR)
  Receive Date: 20130806
  Receipt Date: 20130806
  Transmission Date: 20140515
  Serious: Yes (Other)
  Sender: FDA-Public Use
  Company Number: FR-ELI_LILLY_AND_COMPANY-FR201307008863

PATIENT
  Age: 50 Year
  Sex: Female

DRUGS (4)
  1. PROZAC [Suspect]
     Indication: DEPRESSION
     Dosage: 20 MG, QD
     Dates: start: 20130415, end: 20130429
  2. XANAX [Concomitant]
     Indication: DEPRESSION
     Dosage: 0.25 MG, QD
     Dates: start: 20130414
  3. XANAX [Concomitant]
     Dosage: 0.5 MG, QD
  4. SEROPLEX [Concomitant]

REACTIONS (3)
  - Presyncope [Recovered/Resolved]
  - Asthenia [Recovered/Resolved]
  - Paraesthesia [Unknown]
